FAERS Safety Report 4390984-2 (Version None)
Quarter: 2004Q2

REPORT INFORMATION
  Report Type: 
  Country: None (occurrence: None)
  Receive Date: 20040621
  Receipt Date: 20031027
  Transmission Date: 20050107
  Serious: Yes (Death, Other)
  Sender: FDA-Public Use
  Company Number: USA-2003-0010489

PATIENT
  Age: 56 Year
  Sex: Male
  Weight: 131.5 kg

DRUGS (8)
  1. OXYCONTIN [Suspect]
     Indication: PAIN
  2. METHADONE (METHADONE) [Suspect]
  3. ALPRAZOLAM [Suspect]
  4. NICOTINE [Suspect]
  5. NOVOLIN [Concomitant]
  6. NEXIUM [Concomitant]
  7. CLARITIN [Concomitant]
  8. NAPROXEN [Concomitant]

REACTIONS (3)
  - ACCIDENTAL OVERDOSE [None]
  - DRUG ABUSER [None]
  - MULTIPLE DRUG OVERDOSE [None]
